FAERS Safety Report 8853487 (Version 1)
Quarter: 2012Q4

REPORT INFORMATION
  Report Type: 
  Country: CA (occurrence: CA)
  Receive Date: 20121022
  Receipt Date: 20121022
  Transmission Date: 20130627
  Serious: Yes (Other)
  Sender: FDA-Public Use
  Company Number: CA-ASTRAZENECA-2012SE74885

PATIENT
  Age: 19256 Day
  Sex: Male

DRUGS (2)
  1. PULMICORT TURBUHALER [Suspect]
     Indication: ASTHMA
     Route: 055
     Dates: start: 20120626
  2. VENTOLIN [Concomitant]
     Dosage: 2 puffs BID as needed

REACTIONS (2)
  - Asthma [Recovered/Resolved]
  - Circumstance or information capable of leading to medication error [Unknown]
